FAERS Safety Report 5865038-6 (Version None)
Quarter: 2008Q3

REPORT INFORMATION
  Report Type: 
  Country: None (occurrence: None)
  Receive Date: 20080829
  Receipt Date: 20080822
  Transmission Date: 20090109
  Serious: Yes (Death, Hospitalization)
  Sender: FDA-Public Use
  Company Number: A0712515A

PATIENT
  Age: 51 Year
  Sex: Male
  Weight: 107.3 kg

DRUGS (6)
  1. AVANDIA [Suspect]
     Route: 048
     Dates: start: 20020301, end: 20070129
  2. AVANDAMET [Suspect]
     Route: 048
     Dates: start: 20041018, end: 20050613
  3. AMARYL [Concomitant]
     Dates: start: 20020817, end: 20070129
  4. HYDROCHLOROTHIAZIDE [Concomitant]
  5. DIOVAN [Concomitant]
     Dates: start: 20020416
  6. COZAAR [Concomitant]
     Dates: start: 20040305, end: 20060901

REACTIONS (10)
  - CARDIAC ARREST [None]
  - CEREBROVASCULAR ACCIDENT [None]
  - FLUID OVERLOAD [None]
  - FLUID RETENTION [None]
  - HEART INJURY [None]
  - HEPATIC FAILURE [None]
  - INJURY [None]
  - LIVER INJURY [None]
  - MYOCARDIAL INFARCTION [None]
  - PAIN [None]
